FAERS Safety Report 17212729 (Version 1)
Quarter: 2019Q4

REPORT INFORMATION
  Report Type: Spontaneous
  Country: JP (occurrence: JP)
  Receive Date: 20191230
  Receipt Date: 20191230
  Transmission Date: 20200122
  Serious: Yes (Other)
  Sender: FDA-Public Use
  Company Number: JP-MACLEODS PHARMACEUTICALS US LTD-MAC2019024560

PATIENT

DRUGS (1)
  1. DONEPEZIL. [Suspect]
     Active Substance: DONEPEZIL
     Indication: DEMENTIA ALZHEIMER^S TYPE
     Dosage: UNK
     Route: 065

REACTIONS (4)
  - Unmasking of previously unidentified disease [Recovering/Resolving]
  - Loss of personal independence in daily activities [Recovering/Resolving]
  - Progressive supranuclear palsy [Recovering/Resolving]
  - Product selection error [Recovered/Resolved]
